FAERS Safety Report 25943879 (Version 2)
Quarter: 2025Q4

REPORT INFORMATION
  Report Type: Spontaneous
  Country: JP (occurrence: JP)
  Receive Date: 20251021
  Receipt Date: 20251105
  Transmission Date: 20260118
  Serious: Yes (Hospitalization)
  Sender: AMGEN
  Company Number: JP-AMGEN-JPNSP2025207371

PATIENT
  Age: 67 Year
  Sex: Female

DRUGS (2)
  1. IMDELLTRA [Suspect]
     Active Substance: TARLATAMAB-DLLE
     Indication: Small cell lung cancer
     Dosage: 1 MILLIGRAM, INJECTION (DRIP INFUSION)
     Route: 040
  2. IMDELLTRA [Suspect]
     Active Substance: TARLATAMAB-DLLE
     Dosage: 10 MILLIGRAM, INJECTION (DRIP INFUSION)
     Route: 040

REACTIONS (2)
  - Cytokine release syndrome [Recovered/Resolved]
  - Small cell lung cancer [Not Recovered/Not Resolved]
